FAERS Safety Report 18984179 (Version 2)
Quarter: 2021Q1

REPORT INFORMATION
  Report Type: Report from Study
  Country: US (occurrence: US)
  Receive Date: 20210309
  Receipt Date: 20210318
  Transmission Date: 20210420
  Serious: No
  Sender: FDA-Public Use
  Company Number: US-ROCHE-2241905

PATIENT
  Age: 60 Year
  Sex: Male

DRUGS (5)
  1. ATEZOLIZUMAB. [Suspect]
     Active Substance: ATEZOLIZUMAB
     Indication: NON-SMALL CELL LUNG CANCER STAGE III
     Dosage: ON 14/NOV/2018, HE RECIEVED LAST DOSE JUST PRIOR TO SAE ONSET.
     Route: 041
     Dates: start: 20180307, end: 20181205
  2. ATEZOLIZUMAB. [Suspect]
     Active Substance: ATEZOLIZUMAB
     Route: 042
     Dates: start: 20190213
  3. CARBOPLATIN. [Suspect]
     Active Substance: CARBOPLATIN
     Indication: NON-SMALL CELL LUNG CANCER STAGE III
     Dosage: ON 01/AUG/2018, HE RECEIVED LAST DOSE (810 MG) JUST PRIOR TO SAE ONSET.
     Route: 042
     Dates: start: 20180530
  4. AZITHROMYCIN ANHYDROUS. [Concomitant]
     Active Substance: AZITHROMYCIN ANHYDROUS
  5. PACLITAXEL. [Suspect]
     Active Substance: PACLITAXEL
     Indication: NON-SMALL CELL LUNG CANCER STAGE III
     Dosage: ON 01/AUG/2018, HE RECEIVED LAST DOSE (384 MG/KG) JUST PRIOR TO SAE ONSET.
     Route: 042
     Dates: start: 20180530

REACTIONS (2)
  - Radiation pneumonitis [Recovered/Resolved]
  - Pancreatitis acute [Recovered/Resolved]

NARRATIVE: CASE EVENT DATE: 20180804
